FAERS Safety Report 14552315 (Version 2)
Quarter: 2021Q2

REPORT INFORMATION
  Report Type: Spontaneous
  Country: US (occurrence: US)
  Receive Date: 20180220
  Receipt Date: 20210518
  Transmission Date: 20210716
  Serious: Yes (Other)
  Sender: FDA-Public Use
  Company Number: US-AUROBINDO-AUR-APL-2018-006045

PATIENT
  Age: 28 Year
  Sex: Male

DRUGS (17)
  1. DEXAMETHASONE. [Concomitant]
     Active Substance: DEXAMETHASONE
     Indication: OEDEMA
     Dosage: 1 MG, DAILY
     Route: 048
  2. CAPREOMYCIN [Concomitant]
     Active Substance: CAPREOMYCIN
     Indication: TUBERCULOMA OF CENTRAL NERVOUS SYSTEM
     Dosage: 1000 MG, DAILY
     Route: 042
  3. DEXAMETHASONE. [Concomitant]
     Active Substance: DEXAMETHASONE
     Dosage: 1 MG, EVERY OTHER DAY
     Route: 048
  4. BEDAQUILINE [Concomitant]
     Active Substance: BEDAQUILINE
     Indication: TUBERCULOSIS OF CENTRAL NERVOUS SYSTEM
     Dosage: 200 MG, THREE TIMES PER WEEK
     Route: 048
  5. DEXAMETHASONE. [Suspect]
     Active Substance: DEXAMETHASONE
     Dosage: 1 MILLIGRAM LONG?TERM STEROID USE
     Route: 048
  6. AMOXICILLIN;CLAVULANATE POTASSIUM [Concomitant]
     Active Substance: AMOXICILLIN\CLAVULANATE POTASSIUM
     Indication: TUBERCULOMA OF CENTRAL NERVOUS SYSTEM
     Dosage: 500 MG/125 MG 3 TIMES A DAY
     Route: 048
  7. MEROPENEM. [Concomitant]
     Active Substance: MEROPENEM
     Indication: TUBERCULOMA OF CENTRAL NERVOUS SYSTEM
     Dosage: 2 G, 3 TIMES A DAY
     Route: 042
  8. LINEZOLID. [Concomitant]
     Active Substance: LINEZOLID
     Indication: TUBERCULOMA OF CENTRAL NERVOUS SYSTEM
     Dosage: 600 MG, DAILY
     Route: 048
  9. MOXIFLOXACIN. [Concomitant]
     Active Substance: MOXIFLOXACIN
     Indication: TUBERCULOMA OF CENTRAL NERVOUS SYSTEM
     Dosage: 400 MG, DAILY
     Route: 048
  10. PYRAZINAMIDE. [Concomitant]
     Active Substance: PYRAZINAMIDE
     Indication: TUBERCULOMA OF CENTRAL NERVOUS SYSTEM
     Dosage: 2000 MG, DAILY
     Route: 048
  11. DEXAMETHASONE. [Suspect]
     Active Substance: DEXAMETHASONE
     Dosage: 1 MILLIGRAM EVERY OTHER DAY, LONG?TERM STEROID USE
     Route: 048
  12. LINEZOLID. [Suspect]
     Active Substance: LINEZOLID
     Indication: TUBERCULOMA OF CENTRAL NERVOUS SYSTEM
     Dosage: 600 MG, DAILY
     Route: 048
  13. DEXAMETHASONE. [Suspect]
     Active Substance: DEXAMETHASONE
     Indication: OEDEMA
     Dosage: 2 MILLIGRAM, FOUR TIMES/DAY LONG?TERM STEROID USE
     Route: 048
  14. DEXAMETHASONE. [Concomitant]
     Active Substance: DEXAMETHASONE
     Dosage: 2 MG, DAILY
     Route: 048
  15. ISONIAZID. [Concomitant]
     Active Substance: ISONIAZID
     Indication: TUBERCULOMA OF CENTRAL NERVOUS SYSTEM
     Dosage: 600 MG, DAILY
     Route: 048
  16. PYRIDOXINE [Concomitant]
     Active Substance: PYRIDOXINE
     Indication: TUBERCULOMA OF CENTRAL NERVOUS SYSTEM
     Dosage: 100 MG, UNK
     Route: 065
  17. BEDAQUILINE [Concomitant]
     Active Substance: BEDAQUILINE
     Dosage: 400 MILLIGRAM, DAILY LOADING DOSE
     Route: 048

REACTIONS (6)
  - General physical health deterioration [Unknown]
  - Osteonecrosis [Unknown]
  - Toxicity to various agents [Unknown]
  - Neuropathy peripheral [Recovering/Resolving]
  - Weight increased [Unknown]
  - Fatigue [Unknown]
